FAERS Safety Report 6698478-6 (Version None)
Quarter: 2010Q2

REPORT INFORMATION
  Report Type: 
  Country: None (occurrence: None)
  Receive Date: 20100426
  Receipt Date: 20100426
  Transmission Date: 20101027
  Serious: Yes (Life-Threatening, Hospitalization)
  Sender: FDA-Public Use
  Company Number: None

PATIENT
  Age: 73 Year
  Sex: Male
  Weight: 105.6 kg

DRUGS (2)
  1. PROBENECID [Suspect]
     Indication: GOUT
     Dosage: 500 MG BID PO
     Route: 048
     Dates: start: 19990614, end: 20010117
  2. FUROSEMIDE [Suspect]
     Indication: HYPERTENSION
     Dosage: 40 MG EVERY DAY PO
     Route: 048
     Dates: start: 19960325, end: 20100117

REACTIONS (2)
  - CHOLESTASIS [None]
  - INTERNATIONAL NORMALISED RATIO ABNORMAL [None]
